FAERS Safety Report 23210889 (Version 1)
Quarter: 2023Q4

REPORT INFORMATION
  Report Type: Spontaneous
  Country: KR (occurrence: None)
  Receive Date: 20231121
  Receipt Date: 20231121
  Transmission Date: 20240110
  Serious: Yes (Hospitalization)
  Sender: FDA-Public Use
  Company Number: 2023A262930

PATIENT
  Age: 83 Year
  Sex: Male

DRUGS (2)
  1. XIGDUO XR [Suspect]
     Active Substance: DAPAGLIFLOZIN PROPANEDIOL\METFORMIN HYDROCHLORIDE
     Indication: Diabetes mellitus
     Dosage: 1 DOSAGE FORM
     Route: 048
     Dates: start: 20220102, end: 20220103
  2. GLIMEPIRIDE\METFORMIN [Suspect]
     Active Substance: GLIMEPIRIDE\METFORMIN
     Indication: Diabetes mellitus
     Dosage: 1 DOSAGE FORM
     Dates: start: 20220102, end: 20220103

REACTIONS (2)
  - Depressed level of consciousness [Recovered/Resolved]
  - Hypoglycaemia [Recovered/Resolved]

NARRATIVE: CASE EVENT DATE: 20220104
